FAERS Safety Report 17883409 (Version 1)
Quarter: 2020Q2

REPORT INFORMATION
  Report Type: Report from Study
  Country: IT (occurrence: IT)
  Receive Date: 20200611
  Receipt Date: 20200611
  Transmission Date: 20200714
  Serious: Yes (Hospitalization)
  Sender: FDA-Public Use
  Company Number: IT-TEVA-2020-IT-1246821

PATIENT
  Age: 49 Year
  Sex: Male

DRUGS (1)
  1. DULOXETINE HYDROCHLORIDE. [Suspect]
     Active Substance: DULOXETINE HYDROCHLORIDE
     Indication: MAJOR DEPRESSION
     Dosage: 6720 MILLIGRAM
     Route: 048
     Dates: start: 20200510, end: 20200510

REACTIONS (5)
  - Nystagmus [Recovering/Resolving]
  - Transaminases increased [Recovering/Resolving]
  - Serotonin syndrome [Recovering/Resolving]
  - Self-injurious ideation [Recovering/Resolving]
  - Balance disorder [Recovering/Resolving]

NARRATIVE: CASE EVENT DATE: 20200515
